FAERS Safety Report 8994484 (Version 1)
Quarter: 2012Q4

REPORT INFORMATION
  Report Type: Spontaneous
  Country: US (occurrence: None)
  Receive Date: 20121228
  Receipt Date: 20121228
  Transmission Date: 20130627
  Serious: Yes (Hospitalization)
  Sender: FDA-Public Use
  Company Number: None

PATIENT
  Sex: Female
  Weight: 28.3 kg

DRUGS (1)
  1. ANAKINRA [Suspect]
     Indication: CRYOPYRIN ASSOCIATED PERIODIC SYNDROME

REACTIONS (6)
  - Thrombocytopenia [None]
  - Arthralgia [None]
  - Gait disturbance [None]
  - Oedema peripheral [None]
  - Joint warmth [None]
  - Treatment noncompliance [None]
